FAERS Safety Report 13336583 (Version 1)
Quarter: 2017Q1

REPORT INFORMATION
  Report Type: Spontaneous
  Country: GB (occurrence: GB)
  Receive Date: 20170315
  Receipt Date: 20170315
  Transmission Date: 20170428
  Serious: Yes (Other)
  Sender: FDA-Public Use
  Company Number: GB-LUPIN PHARMACEUTICALS INC.-2017-00516

PATIENT
  Age: 73 Year
  Sex: Male

DRUGS (3)
  1. LINEZOLID. [Suspect]
     Active Substance: LINEZOLID
     Dosage: 50 ML INFUSION IRRIGATED DIRECTLY INTO AORTIC SAC, LEFT IN THE SAC FOR 2 HOURS, AND THEN ALLOWED TO
     Route: 065
  2. LINEZOLID. [Suspect]
     Active Substance: LINEZOLID
     Indication: ENTEROCOCCAL INFECTION
     Dosage: 600 MG,BID,
     Route: 048
  3. LINEZOLID. [Suspect]
     Active Substance: LINEZOLID
     Indication: ENTEROCOCCAL INFECTION
     Dosage: 250 ML,UNK,UNKNOWN
     Route: 042

REACTIONS (1)
  - Bone marrow failure [Unknown]
